FAERS Safety Report 7674187-1 (Version None)
Quarter: 2011Q3

REPORT INFORMATION
  Report Type: 
  Country: None (occurrence: None)
  Receive Date: 20110810
  Receipt Date: 20110801
  Transmission Date: 20111222
  Serious: Yes (Hospitalization, Other)
  Sender: FDA-Public Use
  Company Number: US-BAYER-2011-039209

PATIENT
  Age: 42 Year
  Sex: Female
  Weight: 79 kg

DRUGS (5)
  1. IBUPROFEN [Concomitant]
  2. YAZ [Suspect]
     Indication: PREMENSTRUAL SYNDROME
     Dosage: UNK
     Dates: start: 20090501, end: 20090901
  3. ROPINIROLE [Concomitant]
  4. YAZ [Suspect]
     Indication: MENSTRUATION IRREGULAR
  5. CEPHALEXIN [Concomitant]

REACTIONS (4)
  - OEDEMA PERIPHERAL [None]
  - THROMBOSIS [None]
  - DEEP VEIN THROMBOSIS [None]
  - PAIN IN EXTREMITY [None]
